FAERS Safety Report 21396046 (Version 1)
Quarter: 2022Q3

REPORT INFORMATION
  Report Type: Spontaneous
  Country: US (occurrence: None)
  Receive Date: 20220928
  Receipt Date: 20220928
  Transmission Date: 20221026
  Serious: Yes (Other)
  Sender: FDA-Public Use
  Company Number: None

PATIENT
  Age: 75 Year
  Sex: Female

DRUGS (11)
  1. AMBRISENTAN [Suspect]
     Active Substance: AMBRISENTAN
     Indication: Pulmonary arterial hypertension
     Dosage: FREQUENCY : DAILY;?
     Route: 048
     Dates: start: 20210714
  2. TADALAFIL [Concomitant]
     Active Substance: TADALAFIL
  3. METOPROLOL [Concomitant]
     Active Substance: METOPROLOL
  4. FUROSEMIDE [Concomitant]
     Active Substance: FUROSEMIDE
  5. POTASSIUM CHLORIDE [Concomitant]
     Active Substance: POTASSIUM CHLORIDE
  6. LEVOTHYROXINE [Concomitant]
     Active Substance: LEVOTHYROXINE
  7. ROSUVASTATIN [Concomitant]
     Active Substance: ROSUVASTATIN
  8. FERROUS SULFATE [Concomitant]
     Active Substance: FERROUS SULFATE
  9. TIMOLOL OPHT DROP [Concomitant]
  10. OMEPRAZOLE [Concomitant]
     Active Substance: OMEPRAZOLE
  11. VITAMIN D3 [Concomitant]
     Active Substance: CHOLECALCIFEROL

REACTIONS (1)
  - Ventricular extrasystoles [None]

NARRATIVE: CASE EVENT DATE: 20220914
